FAERS Safety Report 22055717 (Version 1)
Quarter: 2023Q1

REPORT INFORMATION
  Report Type: Spontaneous
  Country: US (occurrence: None)
  Receive Date: 20230302
  Receipt Date: 20230302
  Transmission Date: 20230418
  Serious: Yes (Disabling)
  Sender: FDA-Public Use
  Company Number: None

PATIENT
  Age: 27 Year
  Sex: Female
  Weight: 60.78 kg

DRUGS (13)
  1. ARNUITY ELLIPTA [Suspect]
     Active Substance: FLUTICASONE FUROATE
     Indication: Asthma
     Dosage: OTHER QUANTITY : 1 PUFF;?FREQUENCY : DAILY;?
     Route: 048
     Dates: start: 20220202, end: 20220502
  2. OMEGA [Concomitant]
  3. WOMEN^S MULTI GOLD PLANT-BASED VITAMIN + MINERALS [Concomitant]
  4. ZINC [Concomitant]
     Active Substance: ZINC
  5. COLOSTRUM [Concomitant]
  6. MARSHMALLOW ROOT [Concomitant]
  7. DGL (LICORICE EXTRACT) [Concomitant]
  8. AMINOGEN [Concomitant]
  9. RAW PROBIOTICS [Concomitant]
  10. MAGNESIUM [Concomitant]
     Active Substance: MAGNESIUM
  11. CRANBERRY [Concomitant]
     Active Substance: CRANBERRY
  12. PHILLIPS LAXATIVE CAPLETS [Concomitant]
  13. TRI-SPRINTEC [Concomitant]
     Active Substance: ETHINYL ESTRADIOL\NORGESTIMATE

REACTIONS (8)
  - Abdominal pain upper [None]
  - Burning sensation [None]
  - Nausea [None]
  - Hypophagia [None]
  - Cough [None]
  - Head titubation [None]
  - Weight decreased [None]
  - Therapy cessation [None]

NARRATIVE: CASE EVENT DATE: 20220202
